FAERS Safety Report 5341696-X (Version None)
Quarter: 2007Q2

REPORT INFORMATION
  Report Type: 
  Country: None (occurrence: None)
  Receive Date: 20070530
  Receipt Date: 20070514
  Transmission Date: 20071010
  Serious: Yes (Life-Threatening, Hospitalization)
  Sender: FDA-Public Use
  Company Number: 106255

PATIENT
  Age: 80 Year
  Sex: Female

DRUGS (1)
  1. DAIVOBET [Suspect]
     Indication: PSORIASIS
     Dosage: 2 TUBES APPLIED
     Route: 061
     Dates: start: 20061201

REACTIONS (2)
  - ACUTE PULMONARY OEDEMA [None]
  - STREPTOCOCCAL SEPSIS [None]
